FAERS Safety Report 25251040 (Version 1)
Quarter: 2025Q2

REPORT INFORMATION
  Report Type: Spontaneous
  Country: GB (occurrence: GB)
  Receive Date: 20250429
  Receipt Date: 20250429
  Transmission Date: 20250717
  Serious: Yes (Hospitalization)
  Sender: TEVA
  Company Number: GB-MHRA-MIDB-f316a04e-aabe-4e0c-a41a-7e69ab6e6e9d

PATIENT
  Age: 61 Year

DRUGS (11)
  1. SPIRONOLACTONE [Suspect]
     Active Substance: SPIRONOLACTONE
     Indication: Product used for unknown indication
     Dosage: 100 MG TABLETS TWO TO BE TAKEN EACH MORNING-TITRATE AS NEEDED
     Route: 065
  2. SENNA [Concomitant]
     Active Substance: SENNOSIDES
     Indication: Product used for unknown indication
     Dosage: SENNA 7.5 MG TABLETS?ONE OR TWO TO BE TAKEN AT NIGHT IF REQUIRED FOR CONSTIPATION
     Route: 065
  3. LACTULOSE [Concomitant]
     Active Substance: LACTULOSE
     Indication: Product used for unknown indication
     Dosage: 3.1-3.7 G / 5 ML ORAL SOLUTION 15 ML TO BE TAKEN TWICE A DAY, MORNING AND TEATIME WHEN NEEDED FOR...
     Route: 065
  4. Phosphates [Concomitant]
     Indication: Product used for unknown indication
     Dosage: PHOSPHATES ENEMA (FORMULA B) 128ML STANDARD TUBE
     Route: 065
  5. MIRTAZAPINE [Concomitant]
     Active Substance: MIRTAZAPINE
     Indication: Product used for unknown indication
     Route: 065
  6. ENSURE [Concomitant]
     Active Substance: AMINO ACIDS\DEXTROSE\ELECTROLYTES NOS\SOYBEAN OIL\VITAMINS
     Indication: Product used for unknown indication
     Dosage: TAKE ONE FOUR TIMES A DAY ENSURE PLUS MILKSHAKE STYLE LIQUID VANILLA
     Route: 065
  7. THIAMINE [Concomitant]
     Active Substance: THIAMINE
     Indication: Product used for unknown indication
     Route: 065
  8. ENSURE [Concomitant]
     Active Substance: AMINO ACIDS\DEXTROSE\ELECTROLYTES NOS\SOYBEAN OIL\VITAMINS
     Indication: Product used for unknown indication
     Route: 065
  9. RIFAXIMIN [Concomitant]
     Active Substance: RIFAXIMIN
     Indication: Product used for unknown indication
     Route: 065
  10. ENSURE [Concomitant]
     Active Substance: AMINO ACIDS\DEXTROSE\ELECTROLYTES NOS\SOYBEAN OIL\VITAMINS
     Indication: Product used for unknown indication
     Dosage: ENSURE PLUS MILKSHAKE STYLE LIQUID STRAWBERRY
     Route: 065
  11. GABAPENTIN [Concomitant]
     Active Substance: GABAPENTIN
     Indication: Product used for unknown indication
     Route: 065

REACTIONS (2)
  - Gynaecomastia [Unknown]
  - Breast tenderness [Unknown]
